FAERS Safety Report 4309036-2 (Version None)
Quarter: 2004Q1

REPORT INFORMATION
  Report Type: 
  Country: None (occurrence: None)
  Receive Date: 20040301
  Receipt Date: 20040216
  Transmission Date: 20041129
  Serious: Yes (Life-Threatening)
  Sender: FDA-Public Use
  Company Number: 2004-112952-NL

PATIENT
  Age: 64 Year
  Sex: Male

DRUGS (7)
  1. ROCURONIUM BROMIDE (SEE ATTACHED PAGES FOR ADDITIONAL SUSPECT DRUGS) [Suspect]
     Indication: ANAESTHESIA
     Dosage: 50 MG ONCE, INTRAVENOUS (NOS)
     Route: 042
     Dates: start: 20040130, end: 20040130
  2. CEFUROXIME [Suspect]
     Indication: ANAESTHESIA
     Dosage: 1.5 G ONCE, INTRAVENOUS (NOS)
     Route: 042
     Dates: start: 20040130, end: 20040130
  3. OMEPRAZOLE [Concomitant]
  4. PROPOFOL [Concomitant]
  5. DEXAMETHASONE [Concomitant]
  6. MIDAZOLAM HCL [Concomitant]
  7. FENTANYL [Concomitant]

REACTIONS (4)
  - ANAPHYLACTIC REACTION [None]
  - BRONCHOSPASM [None]
  - CIRCULATORY COLLAPSE [None]
  - ERYTHEMA [None]
